FAERS Safety Report 8924217 (Version 2)
Quarter: 2012Q4

REPORT INFORMATION
  Report Type: 
  Country: US (occurrence: US)
  Receive Date: 20121126
  Receipt Date: 20121205
  Transmission Date: 20130627
  Serious: Yes (Other)
  Sender: FDA-Public Use
  Company Number: US-GLAXOSMITHKLINE-A1002931A

PATIENT
  Age: 29 Year
  Sex: Female

DRUGS (4)
  1. WELLBUTRIN [Suspect]
     Indication: DEPRESSION
     Dosage: 300MG Per day
     Route: 048
     Dates: start: 200901, end: 20121001
  2. VIIBRYD [Suspect]
     Indication: DEPRESSION
     Dosage: 40MG Per day
     Route: 048
     Dates: start: 20120629
  3. LAMICTAL [Concomitant]
  4. KLONOPIN [Concomitant]

REACTIONS (4)
  - Convulsion [Recovered/Resolved]
  - Agitation [Recovered/Resolved]
  - Head injury [Unknown]
  - Irritability [Unknown]
